FAERS Safety Report 4620150-4 (Version None)
Quarter: 2005Q1

REPORT INFORMATION
  Report Type: 
  Country: None (occurrence: None)
  Receive Date: 20050324
  Receipt Date: 20050310
  Transmission Date: 20050727
  Serious: Yes (Hospitalization)
  Sender: FDA-Public Use
  Company Number: JP-2004-034860

PATIENT
  Age: 73 Year
  Sex: Male

DRUGS (1)
  1. PROSCOPE 300 (IOPROMIDE) [Suspect]
     Indication: COMPUTERISED TOMOGRAM THORAX
     Dosage: 100 ML, 1 DOSE, INTRAVENOUS
     Route: 042
     Dates: start: 20041104, end: 20041104

REACTIONS (8)
  - ANAPHYLACTOID SHOCK [None]
  - COUGH [None]
  - DYSPHORIA [None]
  - DYSPNOEA [None]
  - ERYTHEMA [None]
  - FLUSHING [None]
  - HYPOAESTHESIA ORAL [None]
  - RASH [None]
